FAERS Safety Report 25682714 (Version 1)
Quarter: 2025Q3

REPORT INFORMATION
  Report Type: Spontaneous
  Country: US (occurrence: None)
  Receive Date: 20250814
  Receipt Date: 20250814
  Transmission Date: 20251021
  Serious: Yes (Life-Threatening, Hospitalization)
  Sender: FDA-CTU
  Company Number: None

PATIENT
  Age: 23 Year
  Sex: Female
  Weight: 56.2 kg

DRUGS (1)
  1. GADOPICLENOL [Suspect]
     Active Substance: GADOPICLENOL
     Indication: Imaging procedure
     Route: 042
     Dates: start: 20250813

REACTIONS (4)
  - Urticaria [None]
  - Pruritus [None]
  - Throat tightness [None]
  - Procedural complication [None]

NARRATIVE: CASE EVENT DATE: 20250813
